FAERS Safety Report 10137140 (Version 1)
Quarter: 2014Q2

REPORT INFORMATION
  Report Type: Spontaneous
  Country: US (occurrence: None)
  Receive Date: 20140428
  Receipt Date: 20140428
  Transmission Date: 20141212
  Serious: No
  Sender: FDA-Public Use
  Company Number: None

PATIENT
  Age: 7 Year
  Sex: Female
  Weight: 23.59 kg

DRUGS (2)
  1. ZADITOR [Suspect]
     Indication: SEASONAL ALLERGY
     Dosage: 1 DROP, INTO THE EYE
     Dates: start: 20140427, end: 20140427
  2. ZADITOR [Suspect]
     Indication: EYE ALLERGY
     Dosage: 1 DROP, INTO THE EYE
     Dates: start: 20140427, end: 20140427

REACTIONS (3)
  - Swollen tongue [None]
  - Pain [None]
  - No reaction on previous exposure to drug [None]
